FAERS Safety Report 20496920 (Version 2)
Quarter: 2022Q1

REPORT INFORMATION
  Report Type: Report from Study
  Country: IL (occurrence: None)
  Receive Date: 20220221
  Receipt Date: 20220301
  Transmission Date: 20220424
  Serious: Yes (Life-Threatening, Hospitalization)
  Sender: FDA-Public Use
  Company Number: IL-ROCHE-3026953

PATIENT
  Age: 70 Year
  Sex: Male
  Weight: 63.3 kg

DRUGS (7)
  1. FARICIMAB [Suspect]
     Active Substance: FARICIMAB
     Indication: Macular oedema
     Dosage: START DATE OF MOST RECENT DOSE OF STUDY DRUG PRIOR TO AE:  16/JAN/2022 11:30 AM
     Route: 050
     Dates: start: 20211026
  2. PLACEBO [Suspect]
     Active Substance: UNSPECIFIED INGREDIENT
     Indication: Macular oedema
     Dosage: START DATE OF MOST RECENT DOSE OF STUDY DRUG PRIOR TO AE:  16/JAN/2022 11:30 AM
     Route: 050
     Dates: start: 20211026
  3. PLACEBO [Suspect]
     Active Substance: UNSPECIFIED INGREDIENT
     Indication: Macular oedema
     Dosage: START DATE OF MOST RECENT DOSE OF STUDY DRUG PRIOR TO AE:  16/JAN/2022 11:30 AM
     Route: 050
     Dates: start: 20211026
  4. RAMIPRIL [Concomitant]
     Active Substance: RAMIPRIL
     Indication: Hypertension
     Route: 048
     Dates: start: 20181004
  5. LIPITOR [Concomitant]
     Active Substance: ATORVASTATIN CALCIUM
     Indication: Hypertension
     Route: 048
     Dates: start: 20181004
  6. VITAMIN B12 [Concomitant]
     Active Substance: CYANOCOBALAMIN
     Indication: Vitamin B12 deficiency
     Route: 048
     Dates: start: 200802
  7. ASPIRIN [Concomitant]
     Active Substance: ASPIRIN
     Route: 048
     Dates: start: 20181004

REACTIONS (1)
  - Cerebrovascular accident [Not Recovered/Not Resolved]

NARRATIVE: CASE EVENT DATE: 20220206
